FAERS Safety Report 4765484-8 (Version None)
Quarter: 2005Q3

REPORT INFORMATION
  Report Type: 
  Country: None (occurrence: None)
  Receive Date: 20050908
  Receipt Date: 20050908
  Transmission Date: 20060218
  Serious: Yes (Hospitalization)
  Sender: FDA-Public Use
  Company Number: None

PATIENT
  Age: 100 Year
  Sex: Female
  Weight: 56 kg

DRUGS (1)
  1. COUMADIN [Suspect]

REACTIONS (2)
  - HAEMATOMA [None]
  - OVERDOSE [None]
